FAERS Safety Report 11566697 (Version 2)
Quarter: 2015Q4

REPORT INFORMATION
  Report Type: Spontaneous
  Country: US (occurrence: US)
  Receive Date: 20150916
  Receipt Date: 20151104
  Transmission Date: 20160304
  Serious: No
  Sender: FDA-Public Use
  Company Number: US-ELI_LILLY_AND_COMPANY-US200906004645

PATIENT
  Age: 63 Year
  Sex: Female

DRUGS (10)
  1. FORTEO [Suspect]
     Active Substance: TERIPARATIDE
     Indication: OSTEOPOROSIS
     Dosage: UNK, UNK
     Dates: start: 20090616
  2. FORTEO [Suspect]
     Active Substance: TERIPARATIDE
     Dosage: UNK
     Dates: end: 2009
  3. VITAMIN C [Concomitant]
     Active Substance: ASCORBIC ACID
  4. BABY ASPIRIN [Concomitant]
     Active Substance: ASPIRIN
     Indication: MITRAL VALVE PROLAPSE
  5. FORTEO [Suspect]
     Active Substance: TERIPARATIDE
     Dosage: UNK
     Dates: start: 2009
  6. VITAMIN D [Concomitant]
     Active Substance: CHOLECALCIFEROL
  7. MULTIVITAMIN [Concomitant]
     Active Substance: VITAMINS
  8. COENZYME Q10 [Concomitant]
     Active Substance: UBIDECARENONE
  9. FORTEO [Suspect]
     Active Substance: TERIPARATIDE
     Dosage: UNK
  10. FORTEO [Suspect]
     Active Substance: TERIPARATIDE
     Dosage: UNK, UNKNOWN

REACTIONS (14)
  - Mental disorder [Not Recovered/Not Resolved]
  - Mental impairment [Recovered/Resolved]
  - Depressed mood [Not Recovered/Not Resolved]
  - Dysmenorrhoea [Not Recovered/Not Resolved]
  - Injection site pain [Not Recovered/Not Resolved]
  - Depression [Not Recovered/Not Resolved]
  - Anxiety [Not Recovered/Not Resolved]
  - Abdominal discomfort [Recovered/Resolved]
  - Feeling abnormal [Recovered/Resolved]
  - Injection site haemorrhage [Not Recovered/Not Resolved]
  - Injection site bruising [Not Recovered/Not Resolved]
  - Uterine haemorrhage [Recovered/Resolved]
  - Anger [Unknown]
  - Drug administration error [Not Recovered/Not Resolved]

NARRATIVE: CASE EVENT DATE: 2009
